FAERS Safety Report 6733570-9 (Version None)
Quarter: 2010Q2

REPORT INFORMATION
  Report Type: 
  Country: None (occurrence: None)
  Receive Date: 20100520
  Receipt Date: 20100517
  Transmission Date: 20101027
  Serious: Yes (Death, Life-Threatening, Hospitalization, Other)
  Sender: FDA-Public Use
  Company Number: JP-SANOFI-AVENTIS-2010SA022569

PATIENT
  Age: 82 Year
  Sex: Male
  Weight: 73 kg

DRUGS (8)
  1. TAXOTERE [Suspect]
     Indication: PROSTATE CANCER RECURRENT
     Dosage: EVERY 2-4 WEEKS
     Route: 041
     Dates: start: 20090324, end: 20100329
  2. DEXAMETHASONE [Concomitant]
     Indication: PREMEDICATION
     Dosage: EVERY 2-4 WEEKS
     Dates: start: 20090324, end: 20100329
  3. DEXAMETHASONE [Concomitant]
     Indication: PROSTATE CANCER RECURRENT
     Route: 048
     Dates: start: 20090601, end: 20100412
  4. FERROMIA [Concomitant]
     Indication: ANAEMIA
     Route: 048
     Dates: start: 20090616, end: 20100412
  5. CYANOCOBALAMIN/PYRIDOXINE HYDROCHLORIDE/THIAMINE DISULFIDE [Concomitant]
     Indication: ANAEMIA
     Route: 048
     Dates: start: 20090616, end: 20100412
  6. ETHINYL ESTRADIOL [Concomitant]
     Indication: PROSTATE CANCER RECURRENT
     Route: 048
     Dates: start: 20090106, end: 20100412
  7. TAKEPRON [Concomitant]
     Indication: GASTRIC MUCOSAL LESION
     Route: 048
     Dates: start: 20100301, end: 20100412
  8. LEUPLIN [Concomitant]
     Indication: PROSTATE CANCER
     Dates: start: 20070301

REACTIONS (2)
  - HEMIPLEGIA [None]
  - INTERSTITIAL LUNG DISEASE [None]
